FAERS Safety Report 8895059 (Version 1)
Quarter: 2012Q4

REPORT INFORMATION
  Report Type: 
  Country: US (occurrence: US)
  Receive Date: 20121108
  Receipt Date: 20121108
  Transmission Date: 20130627
  Serious: Yes (Other)
  Sender: FDA-Public Use
  Company Number: US-ASTRAZENECA-2012SE83220

PATIENT
  Age: 65 Year
  Sex: Female
  Weight: 58.1 kg

DRUGS (5)
  1. FASLODEX [Suspect]
     Indication: BREAST CANCER
     Dosage: 500 MG AS DIRECTED,GIVE 500 MG IM ON DAYS 1 + 15 FOR CYCLE 1,GIVE CYCLE 2 28 DAYS AFTER DAY 1 CYCLES
     Route: 030
  2. FASLODEX [Suspect]
     Indication: BREAST CANCER
     Dosage: 250 MG, AS DIRECTED
     Route: 030
  3. OXYCONTIN [Concomitant]
     Route: 048
  4. VITAMIN D3 [Concomitant]
     Route: 048
  5. NORCO [Concomitant]
     Indication: PAIN
     Dosage: 7.5-3258 MG, EVERY q4 H PRN
     Route: 048

REACTIONS (9)
  - Pleural effusion [Unknown]
  - Malignant pleural effusion [Unknown]
  - Metastases to lung [Unknown]
  - Oedema peripheral [Unknown]
  - Limb discomfort [Unknown]
  - Emotional distress [Unknown]
  - Induration [Unknown]
  - Ulcer [Unknown]
  - Lymphoedema [Unknown]
